FAERS Safety Report 6905063-7 (Version None)
Quarter: 2010Q3

REPORT INFORMATION
  Report Type: 
  Country: None (occurrence: None)
  Receive Date: 20100804
  Receipt Date: 20090903
  Transmission Date: 20110219
  Serious: No
  Sender: FDA-Public Use
  Company Number: US-PFIZER INC-2009243418

PATIENT
  Sex: Female
  Weight: 63.502 kg

DRUGS (5)
  1. LYRICA [Suspect]
     Indication: INTERVERTEBRAL DISC PROTRUSION
     Dosage: 75 MG, 2X/DAY
     Route: 048
     Dates: start: 20090716
  2. LYRICA [Suspect]
     Indication: NEURALGIA
  3. PERCOCET [Concomitant]
  4. MORPHINE [Concomitant]
  5. ADVIL LIQUI-GELS [Concomitant]

REACTIONS (3)
  - DRUG INEFFECTIVE [None]
  - FEELING ABNORMAL [None]
  - SEDATION [None]
